FAERS Safety Report 4765871-8 (Version None)
Quarter: 2005Q3

REPORT INFORMATION
  Report Type: 
  Country: None (occurrence: None)
  Receive Date: 20050908
  Receipt Date: 20050908
  Transmission Date: 20060218
  Serious: Yes (Life-Threatening)
  Sender: FDA-Public Use
  Company Number: None

PATIENT
  Sex: Male
  Weight: 75.2971 kg

DRUGS (10)
  1. BEVACIZUMAB [Suspect]
     Indication: COLON CANCER
     Dosage: 7.5MG/KG Q3 WEEKS
     Dates: start: 20050830, end: 20050830
  2. BEVACIZUMAB [Suspect]
     Indication: METASTASES TO LIVER
     Dosage: 7.5MG/KG Q3 WEEKS
     Dates: start: 20050830, end: 20050830
  3. CAPECITABINE [Suspect]
     Indication: COLON CANCER
     Dosage: 825MG/M2X 14 DAYS PO
     Route: 048
     Dates: start: 20050830, end: 20050903
  4. CAPECITABINE [Suspect]
     Indication: METASTASES TO LIVER
     Dosage: 825MG/M2X 14 DAYS PO
     Route: 048
     Dates: start: 20050830, end: 20050903
  5. GLUCOVANCE [Concomitant]
  6. CARDURA [Concomitant]
  7. PROSCAR [Concomitant]
  8. CAT'S CLAW [Concomitant]
  9. COENZYME Q10 [Concomitant]
  10. IRINOTECAN [Concomitant]

REACTIONS (3)
  - ACUTE MYOCARDIAL INFARCTION [None]
  - HAEMATOCRIT DECREASED [None]
  - HAEMOGLOBIN DECREASED [None]
